FAERS Safety Report 17816118 (Version 1)
Quarter: 2020Q2

REPORT INFORMATION
  Report Type: Spontaneous
  Country: US (occurrence: US)
  Receive Date: 20200522
  Receipt Date: 20200522
  Transmission Date: 20200714
  Serious: No
  Sender: FDA-Public Use
  Company Number: US-GLAXOSMITHKLINE-US2020080756

PATIENT
  Age: 59 Year
  Sex: Female

DRUGS (1)
  1. ARNUITY ELLIPTA [Suspect]
     Active Substance: FLUTICASONE FUROATE
     Indication: ASTHMA
     Dosage: 1 PUFF(S)
     Route: 065
     Dates: start: 20200512

REACTIONS (7)
  - Wrong technique in device usage process [Unknown]
  - Off label use [Unknown]
  - Drug ineffective [Unknown]
  - Wheezing [Not Recovered/Not Resolved]
  - Product dispensing error [Unknown]
  - Condition aggravated [Unknown]
  - Device use confusion [Unknown]

NARRATIVE: CASE EVENT DATE: 20200512
